FAERS Safety Report 15450247 (Version 2)
Quarter: 2018Q4

REPORT INFORMATION
  Report Type: Spontaneous
  Country: US (occurrence: US)
  Receive Date: 20181001
  Receipt Date: 20181003
  Transmission Date: 20190204
  Serious: No
  Sender: FDA-Public Use
  Company Number: US-PFIZER INC-2018388314

PATIENT
  Age: 62 Year
  Sex: Male
  Weight: 108.8 kg

DRUGS (2)
  1. CAVERJECT [Suspect]
     Active Substance: ALPROSTADIL
     Indication: ERECTILE DYSFUNCTION
     Dosage: 40 UG, AS NEEDED
  2. CAVERJECT [Suspect]
     Active Substance: ALPROSTADIL
     Dosage: 40 MG, AS NEEDED
     Dates: start: 20180911

REACTIONS (1)
  - Drug ineffective [Unknown]

NARRATIVE: CASE EVENT DATE: 20180911
